FAERS Safety Report 6309444-4 (Version None)
Quarter: 2009Q3

REPORT INFORMATION
  Report Type: 
  Country: None (occurrence: None)
  Receive Date: 20090814
  Receipt Date: 20090804
  Transmission Date: 20100115
  Serious: Yes (Other)
  Sender: FDA-Public Use
  Company Number: US-TYCO HEALTHCARE/MALLINCKRODT-T200901075

PATIENT
  Sex: Male

DRUGS (18)
  1. OPTIMARK [Suspect]
     Indication: ANGIOGRAM
     Dosage: UNK
     Dates: start: 20050105, end: 20050105
  2. NORVASC [Concomitant]
     Dosage: 5 MG, QD
  3. PREDNISONE [Concomitant]
     Dosage: 10 MG, QD
  4. RENAGEL                            /01459901/ [Concomitant]
     Dosage: 2400 MG, TID WITH MEALS
  5. SENSIPAR [Concomitant]
     Dosage: 30 MG, QD
  6. ZEMPLAR [Concomitant]
     Dosage: 1 UG, QD
  7. EPOGEN [Concomitant]
     Dosage: 12,000 UNITS WITH EACH DIALYSIS
  8. COUMADIN [Concomitant]
     Dosage: 1 MG, QD
  9. NEXIUM [Concomitant]
     Dosage: 40 MG, QD
  10. ZANTAC                             /00550802/ [Concomitant]
     Dosage: 50 MG, EVERY 8 HOURS
  11. COLACE [Concomitant]
     Dosage: 100 MG, BID
  12. FOLIC ACID [Concomitant]
     Dosage: 1 MG, QD
  13. MULTIVITAMIN                       /00831701/ [Concomitant]
     Dosage: 1 TAB DAILY
  14. TYLENOL (CAPLET) [Concomitant]
     Dosage: 650 MG, EVERY 6 HOURS, PRN
  15. BENADRYL [Concomitant]
     Dosage: 50 MG, HS, PRN
  16. FOSRENOL [Concomitant]
     Indication: RENAL DISORDER
     Dosage: 1 G, TID WITH MEALS
  17. VICODIN [Concomitant]
     Indication: PAIN
  18. SODIUM THIOSULFATE [Concomitant]
     Indication: NEPHROGENIC SYSTEMIC FIBROSIS
     Route: 042

REACTIONS (17)
  - ACTIVITIES OF DAILY LIVING IMPAIRED [None]
  - AXILLARY VEIN THROMBOSIS [None]
  - CATHETER RELATED INFECTION [None]
  - CHOLELITHIASIS [None]
  - CONDITION AGGRAVATED [None]
  - HAEMODIALYSIS [None]
  - HEPATIC CYST [None]
  - IMPAIRED WORK ABILITY [None]
  - NEPHROGENIC SYSTEMIC FIBROSIS [None]
  - OFF LABEL USE [None]
  - PERITONEAL DIALYSIS [None]
  - PYONEPHROSIS [None]
  - RENAL CELL CARCINOMA [None]
  - RENAL CYST [None]
  - RENAL FAILURE CHRONIC [None]
  - SUBCLAVIAN VEIN THROMBOSIS [None]
  - THROMBOSIS [None]
